FAERS Safety Report 25212712 (Version 1)
Quarter: 2025Q2

REPORT INFORMATION
  Report Type: Spontaneous
  Country: JP (occurrence: JP)
  Receive Date: 20250418
  Receipt Date: 20250418
  Transmission Date: 20250717
  Serious: Yes (Hospitalization)
  Sender: Haleon PLC
  Company Number: JP-HALEON-2238516

PATIENT
  Age: 44 Year
  Sex: Male
  Weight: 108.4 kg

DRUGS (1)
  1. ALLI [Suspect]
     Active Substance: ORLISTAT
     Indication: Product used for unknown indication
     Dates: end: 20241026

REACTIONS (2)
  - Drug-induced liver injury [Unknown]
  - Wrong patient received product [Unknown]
